FAERS Safety Report 21167373 (Version 1)
Quarter: 2022Q3

REPORT INFORMATION
  Report Type: Spontaneous
  Country: US (occurrence: US)
  Receive Date: 20220803
  Receipt Date: 20220803
  Transmission Date: 20221026
  Serious: No
  Sender: FDA-Public Use
  Company Number: US-ELI_LILLY_AND_COMPANY-US202207005420

PATIENT
  Age: 65 Year
  Sex: Female

DRUGS (1)
  1. BEBTELOVIMAB [Suspect]
     Active Substance: BEBTELOVIMAB
     Indication: COVID-19
     Dosage: UNK, SINGLE
     Route: 065
     Dates: start: 20220707, end: 20220707

REACTIONS (11)
  - Productive cough [Unknown]
  - Anxiety [Unknown]
  - Sputum abnormal [Unknown]
  - Fatigue [Unknown]
  - Condition aggravated [Unknown]
  - Headache [Unknown]
  - Confusional state [Unknown]
  - Dysphonia [Unknown]
  - Asthenia [Unknown]
  - Dyspnoea exertional [Unknown]
  - Oropharyngeal discomfort [Unknown]

NARRATIVE: CASE EVENT DATE: 20220707
